FAERS Safety Report 10140730 (Version 1)
Quarter: 2014Q2

REPORT INFORMATION
  Report Type: Report from Study
  Country: US (occurrence: US)
  Receive Date: 20140429
  Receipt Date: 20140429
  Transmission Date: 20141212
  Serious: Yes (Death)
  Sender: FDA-Public Use
  Company Number: PHEH2014US008258

PATIENT
  Age: 67 Year
  Sex: Male

DRUGS (6)
  1. TASIGNA [Suspect]
     Indication: CHRONIC MYELOID LEUKAEMIA
     Dosage: 300 MG, BID
     Route: 048
     Dates: start: 20121101
  2. LISINOPRIL [Concomitant]
  3. GABAPENTIN [Concomitant]
  4. OXYCODONE AND ACETAMINOPHEN [Concomitant]
  5. DOXYCYCLINE [Concomitant]
  6. LORAZEPAM [Concomitant]

REACTIONS (1)
  - Death [Fatal]
